FAERS Safety Report 7463587-0 (Version None)
Quarter: 2011Q1

REPORT INFORMATION
  Report Type: 
  Country: None (occurrence: None)
  Receive Date: 20110302
  Receipt Date: 20100820
  Transmission Date: 20110831
  Serious: Yes (Other)
  Sender: FDA-Public Use
  Company Number: 163-21880-10082062

PATIENT
  Age: 57 Year
  Sex: Female

DRUGS (2)
  1. REVLIMID [Suspect]
     Indication: MULTIPLE MYELOMA
     Dosage: 15 MG, DAILY X 21 DAYS/28 DAYS, PO, DAILY X 21 DAYS/28 DAYS, PO
     Route: 048
     Dates: start: 20091101
  2. REVLIMID [Suspect]
     Indication: MULTIPLE MYELOMA
     Dosage: 15 MG, DAILY X 21 DAYS/28 DAYS, PO, DAILY X 21 DAYS/28 DAYS, PO
     Route: 048
     Dates: start: 20090901

REACTIONS (3)
  - HAEMATOMA [None]
  - DEEP VEIN THROMBOSIS [None]
  - PNEUMONIA PRIMARY ATYPICAL [None]
